FAERS Safety Report 7969662-6 (Version None)
Quarter: 2011Q4

REPORT INFORMATION
  Report Type: 
  Country: None (occurrence: None)
  Receive Date: 20111208
  Receipt Date: 20111202
  Transmission Date: 20120403
  Serious: Yes (Death)
  Sender: FDA-Public Use
  Company Number: ADR-2011-11671

PATIENT
  Sex: Female

DRUGS (4)
  1. BACLOFEN [Suspect]
     Indication: CANCER PAIN
     Dosage: 224.78 MCG/DAY
  2. DILAUDID 4 MG/ML [Concomitant]
  3. CLONIDINE 200 MCG/ML [Concomitant]
  4. BUPIVACAINE 30 MG/M [Concomitant]

REACTIONS (2)
  - CONDITION AGGRAVATED [None]
  - OVARIAN CANCER METASTATIC [None]
